FAERS Safety Report 5022772-8 (Version None)
Quarter: 2006Q2

REPORT INFORMATION
  Report Type: 
  Country: None (occurrence: None)
  Receive Date: 20060609
  Receipt Date: 20060601
  Transmission Date: 20061013
  Serious: Yes (Hospitalization)
  Sender: FDA-Public Use
  Company Number: US-MERCK-0606USA00102

PATIENT
  Age: 77 Year
  Sex: Male
  Weight: 57 kg

DRUGS (1)
  1. ZOCOR [Suspect]
     Indication: BLOOD CHOLESTEROL INCREASED
     Route: 048
     Dates: start: 20051201, end: 20051201

REACTIONS (13)
  - ASTHENIA [None]
  - DYSPHAGIA [None]
  - EATING DISORDER [None]
  - GASTROINTESTINAL DISORDER [None]
  - HYPERHIDROSIS [None]
  - HYPOTENSION [None]
  - LOSS OF CONTROL OF LEGS [None]
  - MUSCLE DISORDER [None]
  - NAUSEA [None]
  - OESOPHAGEAL DISORDER [None]
  - REGURGITATION OF FOOD [None]
  - STOMACH DISCOMFORT [None]
  - WEIGHT DECREASED [None]
